FAERS Safety Report 9026631 (Version 1)
Quarter: 2013Q1

REPORT INFORMATION
  Report Type: Spontaneous
  Country: US (occurrence: None)
  Receive Date: 20130114
  Receipt Date: 20130114
  Transmission Date: 20140127
  Serious: Yes (Death)
  Sender: FDA-Public Use
  Company Number: None

PATIENT
  Age: 73 None
  Sex: Male
  Weight: 79.38 kg

DRUGS (1)
  1. PRADAXA [Suspect]
     Indication: ARRHYTHMIA
     Dates: start: 2010, end: 2011

REACTIONS (1)
  - Sudden death [None]
